FAERS Safety Report 18475056 (Version 2)
Quarter: 2020Q4

REPORT INFORMATION
  Report Type: Report from Study
  Country: US (occurrence: US)
  Receive Date: 20201106
  Receipt Date: 20201112
  Transmission Date: 20210114
  Serious: Yes (Hospitalization)
  Sender: FDA-Public Use
  Company Number: US-TAKEDA-US202017480

PATIENT
  Age: 61 Year
  Sex: Female

DRUGS (8)
  1. TEDUGLUTIDE [Suspect]
     Active Substance: TEDUGLUTIDE
     Indication: PRODUCT USED FOR UNKNOWN INDICATION
     Dosage: 0.25 MILLILITER, 1X/DAY:QD(5 MG)
     Route: 058
  2. TEDUGLUTIDE [Suspect]
     Active Substance: TEDUGLUTIDE
     Dosage: 0.25 MILLILITER, 1X/DAY:QD
     Route: 058
     Dates: start: 20201103
  3. TEDUGLUTIDE [Suspect]
     Active Substance: TEDUGLUTIDE
     Dosage: 0.25 MILLILITER, 1X/DAY:QD
     Route: 058
     Dates: start: 20201103
  4. TEDUGLUTIDE [Suspect]
     Active Substance: TEDUGLUTIDE
     Indication: PRODUCT USED FOR UNKNOWN INDICATION
     Dosage: 0.25 MILLILITER, 1X/DAY:QD(5 MG)
     Route: 058
  5. TEDUGLUTIDE [Suspect]
     Active Substance: TEDUGLUTIDE
     Indication: PRODUCT USED FOR UNKNOWN INDICATION
     Dosage: 0.25 MILLILITER, 1X/DAY:QD(5 MG)
     Route: 058
  6. TEDUGLUTIDE [Suspect]
     Active Substance: TEDUGLUTIDE
     Dosage: 0.25 MILLILITER, 1X/DAY:QD
     Route: 058
     Dates: start: 20201103
  7. TEDUGLUTIDE [Suspect]
     Active Substance: TEDUGLUTIDE
     Indication: PRODUCT USED FOR UNKNOWN INDICATION
     Dosage: 0.25 MILLILITER, 1X/DAY:QD(5 MG)
     Route: 058
  8. TEDUGLUTIDE [Suspect]
     Active Substance: TEDUGLUTIDE
     Dosage: 0.25 MILLILITER, 1X/DAY:QD
     Route: 058
     Dates: start: 20201103

REACTIONS (4)
  - Pyrexia [Unknown]
  - Cough [Unknown]
  - Blood glucose decreased [Unknown]
  - Pain [Unknown]
